FAERS Safety Report 14934767 (Version 2)
Quarter: 2018Q3

REPORT INFORMATION
  Report Type: Spontaneous
  Country: US (occurrence: US)
  Receive Date: 20180524
  Receipt Date: 20180814
  Transmission Date: 20181010
  Serious: Yes (Other)
  Sender: FDA-Public Use
  Company Number: US-009507513-1805USA008705

PATIENT
  Age: 62 Year
  Sex: Female

DRUGS (1)
  1. KEYTRUDA [Suspect]
     Active Substance: PEMBROLIZUMAB
     Indication: METASTATIC MALIGNANT MELANOMA
     Dosage: UNK
     Route: 042

REACTIONS (4)
  - Neuropathy peripheral [Unknown]
  - Pain in jaw [Recovered/Resolved]
  - Antinuclear antibody positive [Unknown]
  - Musculoskeletal chest pain [Recovered/Resolved]
